FAERS Safety Report 8206938-1 (Version None)
Quarter: 2012Q1

REPORT INFORMATION
  Report Type: 
  Country: None (occurrence: None)
  Receive Date: 20120314
  Receipt Date: 20120302
  Transmission Date: 20120608
  Serious: No
  Sender: FDA-Public Use
  Company Number: US-JNJFOC-20120302708

PATIENT
  Sex: Male

DRUGS (4)
  1. DEPAKOTE ER [Concomitant]
     Indication: PRODUCT USED FOR UNKNOWN INDICATION
     Route: 048
  2. DEPAKOTE ER [Concomitant]
     Dosage: 1000 MG
     Route: 048
  3. DIPHENHYDRAMINE HCL [Concomitant]
     Indication: PRODUCT USED FOR UNKNOWN INDICATION
     Dosage: AS NEEDED AT BED TIME
     Route: 048
  4. INVEGA SUSTENNA [Suspect]
     Indication: PRODUCT USED FOR UNKNOWN INDICATION
     Route: 030
     Dates: start: 20110316

REACTIONS (3)
  - INJECTION SITE DISCOLOURATION [None]
  - EYE PAIN [None]
  - INJECTION SITE MASS [None]
